FAERS Safety Report 9901276 (Version 1)
Quarter: 2014Q1

REPORT INFORMATION
  Report Type: Spontaneous
  Country: FR (occurrence: FR)
  Receive Date: 20140217
  Receipt Date: 20140217
  Transmission Date: 20141002
  Serious: Yes (Hospitalization)
  Sender: FDA-Public Use
  Company Number: FR-ASTRAZENECA-2014SE09532

PATIENT
  Age: 58 Year
  Sex: Female

DRUGS (18)
  1. INEXIUM [Suspect]
     Route: 048
     Dates: end: 20040906
  2. CELLCEPT [Suspect]
     Route: 048
     Dates: start: 200405
  3. CELLCEPT [Suspect]
     Route: 048
     Dates: start: 20040812
  4. CLAMOXYL [Suspect]
     Route: 048
     Dates: end: 20040909
  5. NEORAL [Suspect]
     Route: 048
     Dates: start: 200405, end: 20040913
  6. NEORAL [Suspect]
     Dosage: 50 MG IN THE MORNING AND 75 MG IN THE EVENING
     Route: 048
     Dates: start: 20040913
  7. ROVALCYTE [Suspect]
     Dosage: 1 DF EVERY 2 WEEKS
     Route: 048
     Dates: start: 2004
  8. ROVALCYTE [Suspect]
     Dosage: TREATMENT WITH ROVALCYTE WAS DECREASE TO 2 INTAKE PER WEEK
     Route: 048
     Dates: start: 20040816
  9. ROVALCYTE [Suspect]
     Dosage: DOSE WAS REINCREASED.
     Route: 048
     Dates: start: 20040901
  10. ROVALCYTE [Suspect]
     Route: 048
     Dates: end: 20040906
  11. ZELITREX [Suspect]
     Route: 048
     Dates: start: 20040906, end: 20040909
  12. SOLUPRED [Concomitant]
  13. PREVISCAN [Concomitant]
     Dates: start: 20040908, end: 20040909
  14. LEVOTHYROX [Concomitant]
  15. CACIT VITAMI D3 [Concomitant]
  16. LEXOMIL [Concomitant]
  17. CYMEVAN [Concomitant]
     Indication: CYTOMEGALOVIRUS VIRAEMIA
  18. CALCIPARINE [Concomitant]
     Dates: start: 20040907

REACTIONS (2)
  - Agranulocytosis [Recovered/Resolved]
  - Neutropenia [Recovered/Resolved]
